FAERS Safety Report 5147571-8 (Version None)
Quarter: 2006Q4

REPORT INFORMATION
  Report Type: 
  Country: None (occurrence: None)
  Receive Date: 20061106
  Receipt Date: 20061024
  Transmission Date: 20070319
  Serious: Yes (Hospitalization, Other)
  Sender: FDA-Public Use
  Company Number: 2006130301

PATIENT
  Age: 82 Year
  Sex: Female
  Weight: 56.6996 kg

DRUGS (4)
  1. CADUET [Suspect]
     Indication: BLOOD CHOLESTEROL INCREASED
     Dosage: 10MG/20MG (DAILY)
  2. CADUET [Suspect]
     Indication: HYPERTENSION
     Dosage: 10MG/20MG (DAILY)
  3. BENICAR [Concomitant]
  4. ZETIA [Concomitant]

REACTIONS (2)
  - COLITIS ULCERATIVE [None]
  - DIZZINESS [None]
